FAERS Safety Report 8119003-9 (Version None)
Quarter: 2012Q1

REPORT INFORMATION
  Report Type: 
  Country: None (occurrence: None)
  Receive Date: 20120207
  Receipt Date: 20120203
  Transmission Date: 20120608
  Serious: Yes (Death)
  Sender: FDA-Public Use
  Company Number: FR-ROCHE-1037208

PATIENT
  Sex: Male
  Weight: 73 kg

DRUGS (1)
  1. VEMURAFENIB [Suspect]
     Indication: PRODUCT USED FOR UNKNOWN INDICATION
     Dates: start: 20120118, end: 20120129

REACTIONS (3)
  - SEPSIS [None]
  - RASH [None]
  - RENAL FAILURE ACUTE [None]
